FAERS Safety Report 8482135 (Version 3)
Quarter: 2013Q2

REPORT INFORMATION
  Report Type: Report from Study
  Country: AU (occurrence: AU)
  Receive Date: 20120329
  Receipt Date: 20130515
  Transmission Date: 20140414
  Serious: Yes (Hospitalization, Other)
  Sender: FDA-Public Use
  Company Number: AU-ROCHE-1050341

PATIENT
  Age: 72 Year
  Sex: Female

DRUGS (10)
  1. ACTEMRA [Suspect]
     Indication: RHEUMATOID ARTHRITIS
     Route: 042
     Dates: start: 20101102
  2. ACTEMRA [Suspect]
     Dosage: 1 UNIT
     Route: 042
  3. SOMAC (AUSTRALIA) [Concomitant]
     Route: 048
  4. KARVEA [Concomitant]
  5. FOLIC ACID [Concomitant]
  6. PROTOS [Concomitant]
  7. ENDEP [Concomitant]
  8. COUMADIN [Concomitant]
  9. DIGOXIN [Concomitant]
  10. PANADEINE FORTE [Concomitant]
     Dosage: 2 UNITS
     Route: 048

REACTIONS (13)
  - Faecaloma [Not Recovered/Not Resolved]
  - Supraventricular tachycardia [Not Recovered/Not Resolved]
  - Hiatus hernia [Not Recovered/Not Resolved]
  - Nasopharyngitis [Not Recovered/Not Resolved]
  - Pneumonia [Not Recovered/Not Resolved]
  - Upper limb fracture [Unknown]
  - Haemorrhoids [Unknown]
  - Nausea [Unknown]
  - Malaise [Unknown]
  - Abdominal discomfort [Not Recovered/Not Resolved]
  - Pain [Unknown]
  - Vomiting [Unknown]
  - Spinal compression fracture [Unknown]
